FAERS Safety Report 6023654-5 (Version None)
Quarter: 2008Q4

REPORT INFORMATION
  Report Type: 
  Country: None (occurrence: None)
  Receive Date: 20081229
  Receipt Date: 20081229
  Transmission Date: 20090506
  Serious: No
  Sender: FDA-Public Use
  Company Number: None

PATIENT
  Age: 46 Year
  Sex: Male
  Weight: 117.9352 kg

DRUGS (1)
  1. ZICAM NASAL SPRAY MATTRIX INITIATIVES [Suspect]
     Indication: NASOPHARYNGITIS
     Dosage: 4 SPRAYS IN MOUTH EVERY 3 HOURS PO
     Route: 048
     Dates: start: 20081207, end: 20081209

REACTIONS (5)
  - AGEUSIA [None]
  - ANOSMIA [None]
  - CONDITION AGGRAVATED [None]
  - IMPAIRED WORK ABILITY [None]
  - NASOPHARYNGITIS [None]
